FAERS Safety Report 5833971-7 (Version None)
Quarter: 2008Q3

REPORT INFORMATION
  Report Type: 
  Country: None (occurrence: None)
  Receive Date: 20080805
  Receipt Date: 20080723
  Transmission Date: 20090109
  Serious: Yes (Hospitalization, Other)
  Sender: FDA-Public Use
  Company Number: US-ELI_LILLY_AND_COMPANY-US200709002692

PATIENT
  Sex: Female
  Weight: 48.98 kg

DRUGS (5)
  1. FORTEO [Suspect]
     Indication: OSTEOPOROSIS
     Dosage: 20 UG, DAILY (1/D)
     Dates: start: 20070101, end: 20080721
  2. FORTEO [Suspect]
     Dates: start: 20061231
  3. FORTEO [Suspect]
     Dates: start: 20061231
  4. ASACOL [Concomitant]
     Indication: COLITIS ULCERATIVE
  5. VITAMIN TAB [Concomitant]

REACTIONS (5)
  - BONE PAIN [None]
  - FALL [None]
  - PELVIC FRACTURE [None]
  - POSTURE ABNORMAL [None]
  - SPINAL DISORDER [None]
